FAERS Safety Report 5563464-6 (Version None)
Quarter: 2007Q4

REPORT INFORMATION
  Report Type: 
  Country: None (occurrence: None)
  Receive Date: 20071217
  Receipt Date: 20070524
  Transmission Date: 20080405
  Serious: No
  Sender: FDA-Public Use
  Company Number: US-ASTRAZENECA-2007UW12902

PATIENT
  Age: 57 Year
  Sex: Female
  Weight: 87.5 kg

DRUGS (7)
  1. CRESTOR [Suspect]
     Indication: BLOOD CHOLESTEROL INCREASED
     Route: 048
     Dates: start: 20060701
  2. PREVACID [Concomitant]
  3. AVANDARYL [Concomitant]
  4. ASPIRIN [Concomitant]
  5. CELEBREX [Concomitant]
  6. LISINOPRIL [Concomitant]
  7. HYDROCHLOROTHIAZIDE [Concomitant]

REACTIONS (2)
  - GAIT DISTURBANCE [None]
  - MYALGIA [None]
